FAERS Safety Report 22976812 (Version 6)
Quarter: 2023Q4

REPORT INFORMATION
  Report Type: Report from Study
  Country: CA (occurrence: CA)
  Receive Date: 20230925
  Receipt Date: 20231113
  Transmission Date: 20240109
  Serious: Yes (Hospitalization, Other)
  Sender: FDA-Public Use
  Company Number: CA-MYLANLABS-2023M1082995

PATIENT
  Sex: Female
  Weight: 45 kg

DRUGS (4)
  1. HULIO [Suspect]
     Active Substance: ADALIMUMAB-FKJP
     Indication: Crohn^s disease
     Dosage: 40 MILLIGRAM, BIWEEKLY
     Route: 058
  2. HULIO [Suspect]
     Active Substance: ADALIMUMAB-FKJP
     Dosage: BIWEEKLY
     Route: 058
     Dates: start: 20230914
  3. HULIO [Suspect]
     Active Substance: ADALIMUMAB-FKJP
     Dosage: 40 MILLIGRAM, BIWEEKLY
     Route: 058
     Dates: start: 20230914
  4. ENTOCORT [Concomitant]
     Active Substance: BUDESONIDE
     Indication: Crohn^s disease
     Dosage: 40 MILLIGRAM, QD
     Route: 048

REACTIONS (28)
  - Crohn^s disease [Unknown]
  - Bowel movement irregularity [Recovered/Resolved]
  - Abdominal distension [Not Recovered/Not Resolved]
  - Abdominal rigidity [Recovered/Resolved]
  - Inflammation [Unknown]
  - Decreased appetite [Recovered/Resolved]
  - Abdominal discomfort [Not Recovered/Not Resolved]
  - Abdominal pain [Not Recovered/Not Resolved]
  - Insomnia [Recovered/Resolved]
  - Alopecia [Not Recovered/Not Resolved]
  - Nausea [Recovered/Resolved]
  - Peripheral swelling [Recovered/Resolved]
  - Pain in extremity [Not Recovered/Not Resolved]
  - Nodule [Not Recovered/Not Resolved]
  - C-reactive protein increased [Unknown]
  - Asthenia [Unknown]
  - Muscular weakness [Unknown]
  - Rash [Not Recovered/Not Resolved]
  - Hordeolum [Unknown]
  - Eye pain [Unknown]
  - Swelling of eyelid [Unknown]
  - Erythema of eyelid [Unknown]
  - Erythema [Unknown]
  - Pruritus [Not Recovered/Not Resolved]
  - Weight decreased [Recovered/Resolved]
  - Brain fog [Unknown]
  - Off label use [Unknown]
  - Inappropriate schedule of product administration [Unknown]
